FAERS Safety Report 20169983 (Version 1)
Quarter: 2021Q4

REPORT INFORMATION
  Report Type: Spontaneous
  Country: US (occurrence: None)
  Receive Date: 20211210
  Receipt Date: 20211210
  Transmission Date: 20220303
  Serious: Yes (Other)
  Sender: FDA-Public Use
  Company Number: US-ROCHE-2974167

PATIENT
  Sex: Female

DRUGS (3)
  1. XOLAIR [Suspect]
     Active Substance: OMALIZUMAB
     Indication: Asthma
     Route: 058
     Dates: start: 20210316
  2. DUPIXENT [Concomitant]
     Active Substance: DUPILUMAB
     Dosage: INJECT 2 PENS
     Route: 058
  3. DUPIXENT [Concomitant]
     Active Substance: DUPILUMAB
     Dosage: INJECT 1 PEN
     Route: 058

REACTIONS (1)
  - Nephrolithiasis [Unknown]
